FAERS Safety Report 7607956-4 (Version None)
Quarter: 2011Q3

REPORT INFORMATION
  Report Type: 
  Country: None (occurrence: None)
  Receive Date: 20110712
  Receipt Date: 20110712
  Transmission Date: 20111222
  Serious: Yes (Hospitalization)
  Sender: FDA-Public Use
  Company Number: None

PATIENT
  Age: 61 Year
  Sex: Male
  Weight: 59.1 kg

DRUGS (1)
  1. CISPLATIN [Suspect]
     Dosage: 85 MG OTHER IV
     Route: 042
     Dates: start: 20110308, end: 20110330

REACTIONS (4)
  - VOMITING [None]
  - NAUSEA [None]
  - BLOOD UREA INCREASED [None]
  - BLOOD CREATININE INCREASED [None]
